FAERS Safety Report 9447679 (Version 2)
Quarter: 2013Q3

REPORT INFORMATION
  Report Type: Report from Study
  Country: IT (occurrence: IT)
  Receive Date: 20130808
  Receipt Date: 20130816
  Transmission Date: 20140515
  Serious: Yes (Hospitalization)
  Sender: FDA-Public Use
  Company Number: IT-JNJFOC-20130803005

PATIENT
  Age: 61 Year
  Sex: Female
  Weight: 87 kg

DRUGS (4)
  1. TAPENTADOL [Suspect]
     Indication: LUMBAR RADICULOPATHY
     Route: 048
     Dates: start: 20130710, end: 20130729
  2. PAROXETINE [Concomitant]
     Indication: PRODUCT USED FOR UNKNOWN INDICATION
     Route: 048
  3. CITALOPRAM [Concomitant]
     Indication: PRODUCT USED FOR UNKNOWN INDICATION
     Route: 048
  4. GABAPENTIN [Concomitant]
     Indication: PRODUCT USED FOR UNKNOWN INDICATION
     Route: 065
     Dates: start: 2010

REACTIONS (2)
  - Malaise [Recovered/Resolved]
  - Hallucination [Recovered/Resolved]
